FAERS Safety Report 5211438-7 (Version None)
Quarter: 2006Q4

REPORT INFORMATION
  Report Type: 
  Country: None (occurrence: None)
  Receive Date: 20061115
  Receipt Date: 20060911
  Transmission Date: 20070319
  Serious: No
  Sender: FDA-Public Use
  Company Number: 200615555BWH

PATIENT
  Sex: Male
  Weight: 77.1115 kg

DRUGS (3)
  1. NEXAVAR [Suspect]
     Indication: HEPATIC NEOPLASM MALIGNANT
     Dosage: 400 MG, BID; ORAL
     Route: 048
     Dates: start: 20060906
  2. NEXAVAR [Suspect]
     Indication: RENAL CELL CARCINOMA STAGE UNSPECIFIED
     Dosage: 400 MG, BID; ORAL
     Route: 048
     Dates: start: 20060906
  3. LOPRESSOR [Concomitant]

REACTIONS (5)
  - DIARRHOEA [None]
  - GASTRITIS [None]
  - HYPERCHLORHYDRIA [None]
  - ORAL PAIN [None]
  - TONGUE BLISTERING [None]
